FAERS Safety Report 9691841 (Version 1)
Quarter: 2013Q4

REPORT INFORMATION
  Report Type: Spontaneous
  Country: US (occurrence: US)
  Receive Date: 20131117
  Receipt Date: 20131117
  Transmission Date: 20140711
  Serious: No
  Sender: FDA-Public Use
  Company Number: US-ASTRAZENECA-2013SE81955

PATIENT
  Age: 74 Year
  Sex: Female
  Weight: 58.5 kg

DRUGS (18)
  1. CRESTOR [Suspect]
     Indication: BLOOD CHOLESTEROL
     Route: 048
  2. LISINOPRIL [Suspect]
     Route: 048
  3. METHOTREXATE [Concomitant]
     Indication: RHEUMATOID ARTHRITIS
     Dosage: 2.5MG 6 TABLETS PER WEEK
  4. HCTZ [Concomitant]
  5. TEMAZEPAM [Concomitant]
  6. ASPIRIN [Concomitant]
  7. SYNTHROID [Concomitant]
     Indication: THYROID DISORDER
     Dosage: 25MCG DAILY
  8. LOTEMAX [Concomitant]
     Indication: UVEITIS
     Dosage: 0.5 DAILY
  9. SERTRALINE [Concomitant]
  10. TRAMADOL [Concomitant]
  11. FOLIC ACID [Concomitant]
  12. OXYCONTIN [Concomitant]
     Indication: PAIN
  13. OXYCODONE [Concomitant]
     Indication: PAIN
     Dosage: 10/325 PRN
  14. POTASSIUM [Concomitant]
  15. CALCIUM [Concomitant]
     Dosage: NR DAILY
  16. MAGNESIUM [Concomitant]
     Dosage: NR DAILY
  17. VIT D3 [Concomitant]
     Dosage: NR DAILY
  18. FLUORMETHOLONE [Concomitant]
     Indication: GLAUCOMA
     Dosage: NR CONT

REACTIONS (3)
  - Arthralgia [Not Recovered/Not Resolved]
  - Drug dose omission [Unknown]
  - Intentional drug misuse [Unknown]
